FAERS Safety Report 14819305 (Version 1)
Quarter: 2018Q2

REPORT INFORMATION
  Report Type: Spontaneous
  Country: RU (occurrence: RU)
  Receive Date: 20180427
  Receipt Date: 20180427
  Transmission Date: 20180711
  Serious: Yes (Death, Other)
  Sender: FDA-Public Use
  Company Number: RU-BAYER-2018-080420

PATIENT
  Sex: Female

DRUGS (14)
  1. FERON [Concomitant]
     Active Substance: INTERFERON BETA
     Dosage: UNK
  2. AVASTIN [Concomitant]
     Active Substance: BEVACIZUMAB
     Dosage: UNK
  3. SUTENT [Concomitant]
     Active Substance: SUNITINIB MALATE
     Dosage: UNK
  4. AFINITOR [Concomitant]
     Active Substance: EVEROLIMUS
     Dosage: UNK
  5. NEXAVAR [Suspect]
     Active Substance: SORAFENIB
     Dosage: UNK
     Dates: start: 20081221
  6. X RAY [Concomitant]
     Indication: METASTASES TO BONE
     Dosage: UNK, EQUIVALENT TO  50 G
  7. X RAY [Concomitant]
     Indication: METASTASES TO BONE
     Dosage: UNK, 30 G (APPROXIMATELY)
     Dates: start: 20110928, end: 20111014
  8. DENOSUMAB [Concomitant]
     Active Substance: DENOSUMAB
     Indication: CHEST PAIN
  9. XELODA [Concomitant]
     Active Substance: CAPECITABINE
     Dosage: UNK
  10. VINBLASTIN [Concomitant]
     Active Substance: VINBLASTINE
     Dosage: UNK
  11. INTERFERON ALFA-2B [Concomitant]
     Active Substance: INTERFERON ALFA-2B
     Dosage: UNK
  12. ROFERON-A [Concomitant]
     Active Substance: INTERFERON ALFA-2A
     Dosage: UNK
  13. PAZOPANIB [Concomitant]
     Active Substance: PAZOPANIB
  14. TORISEL [Concomitant]
     Active Substance: TEMSIROLIMUS
     Dosage: UNK

REACTIONS (3)
  - Death [Fatal]
  - Angioedema [None]
  - Face oedema [None]

NARRATIVE: CASE EVENT DATE: 20140816
